FAERS Safety Report 5142588-1 (Version None)
Quarter: 2006Q4

REPORT INFORMATION
  Report Type: 
  Country: None (occurrence: None)
  Receive Date: 20061027
  Receipt Date: 20060911
  Transmission Date: 20070319
  Serious: Yes (Hospitalization, Other)
  Sender: FDA-Public Use
  Company Number: 2006SP001706

PATIENT
  Age: 44 Year
  Sex: Female
  Weight: 63.5036 kg

DRUGS (6)
  1. PEG-INTRON [Suspect]
     Indication: HEPATITIS C
     Dosage: SC
     Route: 058
     Dates: start: 20051104, end: 20060801
  2. REBETOL [Suspect]
     Indication: HEPATITIS C
     Dosage: PO
     Route: 048
     Dates: start: 20051104, end: 20060801
  3. NECON [Concomitant]
  4. ZELNORM [Concomitant]
  5. TEGRETOL [Concomitant]
  6. ZYRTEC [Concomitant]

REACTIONS (14)
  - ANOREXIA [None]
  - ASTHENIA [None]
  - CARPAL TUNNEL SYNDROME [None]
  - DYSPNOEA [None]
  - FLUID INTAKE REDUCED [None]
  - LETHARGY [None]
  - MALNUTRITION [None]
  - MENSTRUAL DISORDER [None]
  - NAUSEA [None]
  - OVARIAN CYST [None]
  - RED BLOOD CELL COUNT DECREASED [None]
  - SOMNOLENCE [None]
  - THROMBOSIS [None]
  - WEIGHT INCREASED [None]
